FAERS Safety Report 23328154 (Version 1)
Quarter: 2023Q4

REPORT INFORMATION
  Report Type: Spontaneous
  Country: US (occurrence: US)
  Receive Date: 20231221
  Receipt Date: 20231221
  Transmission Date: 20240110
  Serious: No
  Sender: FDA-Public Use
  Company Number: US-BRISTOL-MYERS SQUIBB COMPANY-2023-181798

PATIENT
  Age: 74 Year
  Sex: Female
  Weight: 55.79 kg

DRUGS (39)
  1. REVLIMID [Suspect]
     Active Substance: LENALIDOMIDE
     Indication: Plasma cell myeloma
     Dosage: 28/28 DAILY.
     Route: 048
     Dates: start: 20221104
  2. REVLIMID [Suspect]
     Active Substance: LENALIDOMIDE
     Dosage: 28/28 DAILY.
     Route: 048
     Dates: start: 20221201
  3. REVLIMID [Suspect]
     Active Substance: LENALIDOMIDE
     Dosage: 21 DAYS ON 7DAYS OFF
     Route: 048
     Dates: start: 20221201
  4. REVLIMID [Suspect]
     Active Substance: LENALIDOMIDE
     Route: 048
     Dates: start: 20221227
  5. REVLIMID [Suspect]
     Active Substance: LENALIDOMIDE
     Route: 048
     Dates: start: 20230124
  6. REVLIMID [Suspect]
     Active Substance: LENALIDOMIDE
     Route: 048
     Dates: start: 20230220
  7. REVLIMID [Suspect]
     Active Substance: LENALIDOMIDE
     Route: 048
     Dates: start: 20230316
  8. REVLIMID [Suspect]
     Active Substance: LENALIDOMIDE
     Route: 048
     Dates: start: 20230419
  9. REVLIMID [Suspect]
     Active Substance: LENALIDOMIDE
     Route: 048
     Dates: start: 20230518
  10. REVLIMID [Suspect]
     Active Substance: LENALIDOMIDE
     Dosage: FREQUENCY: (28 CT).
     Route: 048
     Dates: start: 20230613
  11. REVLIMID [Suspect]
     Active Substance: LENALIDOMIDE
     Route: 048
     Dates: start: 20230713
  12. REVLIMID [Suspect]
     Active Substance: LENALIDOMIDE
     Route: 048
     Dates: start: 20230811
  13. REVLIMID [Suspect]
     Active Substance: LENALIDOMIDE
     Route: 048
     Dates: start: 20230911
  14. REVLIMID [Suspect]
     Active Substance: LENALIDOMIDE
     Route: 048
     Dates: start: 20231004
  15. REVLIMID [Suspect]
     Active Substance: LENALIDOMIDE
     Route: 048
     Dates: start: 20231030
  16. REVLIMID [Suspect]
     Active Substance: LENALIDOMIDE
     Route: 048
     Dates: start: 20231126
  17. REVLIMID [Suspect]
     Active Substance: LENALIDOMIDE
     Route: 048
     Dates: start: 20231204
  18. REVLIMID [Suspect]
     Active Substance: LENALIDOMIDE
     Route: 048
     Dates: start: 20231205
  19. ALPRAZOLAM [Concomitant]
     Active Substance: ALPRAZOLAM
     Indication: Product used for unknown indication
     Dosage: FREQUENCY: HS
     Route: 048
     Dates: start: 20220303
  20. BENAZEPRIL HYDROCHLORIDE [Concomitant]
     Active Substance: BENAZEPRIL HYDROCHLORIDE
     Indication: Product used for unknown indication
     Route: 048
     Dates: start: 20220303
  21. LEVOCETIRIZINE DIHYDROCHLORIDE [Concomitant]
     Active Substance: LEVOCETIRIZINE DIHYDROCHLORIDE
     Indication: Product used for unknown indication
     Dosage: AS NEEDED
     Route: 048
     Dates: start: 20220303
  22. FLONASE ALLERGY RELIEF [Concomitant]
     Active Substance: FLUTICASONE PROPIONATE
     Indication: Product used for unknown indication
     Dosage: 50 MCG/ACT AS NEEDED.
     Route: 045
     Dates: start: 20220303
  23. CVS MELATONIN [Concomitant]
     Indication: Product used for unknown indication
     Dosage: FREQUENCY: HS.
     Route: 048
     Dates: start: 20220303
  24. ACETAMINOPHEN [Concomitant]
     Active Substance: ACETAMINOPHEN
     Indication: Product used for unknown indication
     Dosage: EXTRA STRENGHT    AS NEEDED
     Route: 048
     Dates: start: 20220303
  25. PROLIA [Concomitant]
     Active Substance: DENOSUMAB
     Indication: Product used for unknown indication
     Dosage: SUBCUTANEOUS SOLUTION PREFILLED.
     Route: 058
     Dates: start: 20220307
  26. SINUS [AMOXICILLIN TRIHYDRATE;BENZYDAMINE HYDROCHLORIDE;BROMHEXINE HYD [Concomitant]
     Indication: Product used for unknown indication
     Dosage: 3-4 TABS PO AS NEEDED.
     Route: 048
     Dates: start: 20220307
  27. SIMVASTATIN [Concomitant]
     Active Substance: SIMVASTATIN
     Indication: Product used for unknown indication
     Route: 048
     Dates: start: 20220307
  28. ASPIRIN [Concomitant]
     Active Substance: ASPIRIN
     Indication: Product used for unknown indication
     Dosage: DELAYED RELEASE.
     Route: 048
     Dates: start: 20220307
  29. METOCLOPRAMIDE HYDROCHLORIDE [Concomitant]
     Active Substance: METOCLOPRAMIDE HYDROCHLORIDE
     Indication: Product used for unknown indication
     Dosage: AS NEEDED TAKES WITH MEALS IF NAUSEATED.
     Route: 048
     Dates: start: 20220401
  30. PREVIDENT [Concomitant]
     Active Substance: SODIUM FLUORIDE
     Indication: Product used for unknown indication
     Dosage: 5000 PLUS DENTAL CREAM 1.
     Route: 048
     Dates: start: 20220608
  31. CITRACAL + D3 [Concomitant]
     Indication: Product used for unknown indication
     Dosage: 250-107-500
     Route: 048
     Dates: start: 20220307
  32. METOPROLOL SUCCINATE [Concomitant]
     Active Substance: METOPROLOL SUCCINATE
     Indication: Product used for unknown indication
     Dates: start: 20211026
  33. HYDROCHLOROTHIAZIDE [Concomitant]
     Active Substance: HYDROCHLOROTHIAZIDE
     Indication: Product used for unknown indication
     Dates: start: 20211026
  34. CITALOPRAM HYDROBROMIDE [Concomitant]
     Active Substance: CITALOPRAM HYDROBROMIDE
     Indication: Product used for unknown indication
     Dates: start: 20211026
  35. CEFDINIR [Concomitant]
     Active Substance: CEFDINIR
     Indication: Product used for unknown indication
     Dates: start: 20211026
  36. ATROPINE\DIPHENOXYLATE [Concomitant]
     Active Substance: ATROPINE\DIPHENOXYLATE
     Indication: Product used for unknown indication
     Dosage: 2.5-0.025 TABS
     Dates: start: 20211101
  37. RESTASIS [Concomitant]
     Active Substance: CYCLOSPORINE
     Indication: Product used for unknown indication
     Dosage: 0.05% EMUL
     Dates: start: 20211101
  38. CHOLESTYRAMINE [Concomitant]
     Active Substance: CHOLESTYRAMINE
     Indication: Product used for unknown indication
     Dosage: 4GMJDOSE POWD
     Dates: start: 20211101
  39. OMEPRAZOLE [Concomitant]
     Active Substance: OMEPRAZOLE
     Indication: Product used for unknown indication
     Dosage: 20MG CPDR
     Dates: start: 20211101

REACTIONS (2)
  - Constipation [Recovered/Resolved]
  - Diarrhoea [Recovering/Resolving]

NARRATIVE: CASE EVENT DATE: 20231102
